FAERS Safety Report 7290476-7 (Version None)
Quarter: 2011Q1

REPORT INFORMATION
  Report Type: 
  Country: None (occurrence: None)
  Receive Date: 20110127
  Receipt Date: 20110112
  Transmission Date: 20110831
  Serious: Yes (Other)
  Sender: FDA-Public Use
  Company Number: 2009S1003630

PATIENT
  Age: 72 Year
  Sex: Male
  Weight: 93.441 kg

DRUGS (11)
  1. IBUPROFEN [Concomitant]
  2. GLUCOSAMINE W/CHONDROITIN SULF./MANGAN./VIT C [Concomitant]
  3. HYDROCHLOROTHIAZIDE [Concomitant]
  4. MEVACOR [Concomitant]
  5. SODIUM PHOSPHATE DIBASIC/SODIUM PHOSPHATE MONOBASIC (ANHYDRATE) [Suspect]
     Indication: COLONOSCOPY
     Dosage: ; PO
     Route: 048
     Dates: start: 20070725, end: 20070725
  6. GLYBURIDE [Concomitant]
  7. ASPIRIN [Concomitant]
  8. FENTANYL [Concomitant]
  9. MIDAZOLAM HCL [Concomitant]
  10. ZESTRIL [Concomitant]
  11. MULTI-VITAMINS [Concomitant]

REACTIONS (12)
  - ASTHENIA [None]
  - CHROMATURIA [None]
  - HYPOPHAGIA [None]
  - MALAISE [None]
  - INFLUENZA LIKE ILLNESS [None]
  - DIARRHOEA [None]
  - RENAL FAILURE ACUTE [None]
  - RENAL FAILURE CHRONIC [None]
  - ABDOMINAL DISTENSION [None]
  - ABDOMINAL PAIN UPPER [None]
  - ANAEMIA [None]
  - TOXICITY TO VARIOUS AGENTS [None]
